FAERS Safety Report 9100096 (Version 1)
Quarter: 2013Q1

REPORT INFORMATION
  Report Type: Report from Study
  Country: CA (occurrence: CA)
  Receive Date: 20130215
  Receipt Date: 20130215
  Transmission Date: 20140127
  Serious: Yes (Other)
  Sender: FDA-Public Use
  Company Number: CA-ABBOTT-13P-028-1049647-00

PATIENT
  Sex: Female

DRUGS (4)
  1. HUMIRA [Suspect]
     Indication: RHEUMATOID ARTHRITIS
     Route: 058
     Dates: start: 20050510, end: 20130118
  2. METHOTREXATE [Concomitant]
     Indication: ANTIINFLAMMATORY THERAPY
     Route: 048
  3. CORTISONE [Concomitant]
     Indication: INFLAMMATION
     Dosage: ONCE EVERY 2 TO 3 MONTHS
     Route: 058
  4. UNKNOWN NERVE BLOCKER [Concomitant]
     Indication: PAIN
     Route: 058

REACTIONS (5)
  - Mass [Recovering/Resolving]
  - Foot fracture [Recovering/Resolving]
  - Joint dislocation [Recovering/Resolving]
  - Urinary tract infection [Recovered/Resolved]
  - Pain [Recovering/Resolving]
